FAERS Safety Report 10921079 (Version 1)
Quarter: 2015Q1

REPORT INFORMATION
  Report Type: Spontaneous
  Country: US (occurrence: None)
  Receive Date: 20150313
  Receipt Date: 20150313
  Transmission Date: 20150721
  Serious: No
  Sender: FDA-Public Use
  Company Number: None

PATIENT
  Age: 83 Year
  Sex: Female

DRUGS (1)
  1. FORTEO [Suspect]
     Active Substance: TERIPARATIDE
     Indication: OSTEOPOROSIS
     Route: 058
     Dates: start: 20150110

REACTIONS (5)
  - Nausea [None]
  - Chills [None]
  - Feeling cold [None]
  - Myalgia [None]
  - Gait disturbance [None]

NARRATIVE: CASE EVENT DATE: 20150216
